FAERS Safety Report 6672014-2 (Version None)
Quarter: 2010Q2

REPORT INFORMATION
  Report Type: 
  Country: None (occurrence: None)
  Receive Date: 20100407
  Receipt Date: 20100331
  Transmission Date: 20101027
  Serious: Yes (Life-Threatening, Hospitalization)
  Sender: FDA-Public Use
  Company Number: JP-MERCK-1003USA01443

PATIENT
  Age: 73 Year
  Sex: Female

DRUGS (11)
  1. EMEND [Suspect]
     Indication: PROPHYLAXIS OF NAUSEA AND VOMITING
     Route: 048
     Dates: start: 20100225, end: 20100225
  2. EMEND [Suspect]
     Route: 048
     Dates: start: 20100226, end: 20100227
  3. GRANISETRON HYDROCHLORIDE [Concomitant]
     Route: 042
     Dates: start: 20100225, end: 20100225
  4. PRIMPERAN INJ [Concomitant]
     Route: 065
     Dates: start: 20100225, end: 20100225
  5. DEXART [Suspect]
     Route: 065
     Dates: start: 20100225, end: 20100225
  6. DECADRON [Suspect]
     Route: 065
     Dates: start: 20100225, end: 20100228
  7. FARMORUBICIN [Concomitant]
     Route: 065
     Dates: start: 20100225, end: 20100225
  8. CYCLOPHOSPHAMIDE [Concomitant]
     Route: 065
     Dates: start: 20100225, end: 20100225
  9. FLUOROURACIL [Concomitant]
     Route: 065
     Dates: start: 20100225, end: 20100225
  10. NOVAMIN (PROCHLORPERAZINE MESYLATE) [Concomitant]
     Route: 065
     Dates: start: 20100225, end: 20100228
  11. ZOFRAN [Concomitant]
     Route: 065
     Dates: start: 20100225, end: 20100227

REACTIONS (2)
  - DRUG INTERACTION [None]
  - DUODENAL ULCER PERFORATION [None]
